FAERS Safety Report 9563802 (Version 1)
Quarter: 2013Q3

REPORT INFORMATION
  Report Type: Spontaneous
  Country: US (occurrence: None)
  Receive Date: 20130926
  Receipt Date: 20130926
  Transmission Date: 20140520
  Serious: Yes (Life-Threatening, Other)
  Sender: FDA-Public Use
  Company Number: FK201304298

PATIENT
  Age: 66 Year
  Sex: Female

DRUGS (2)
  1. BUPIVACAINE [Suspect]
     Indication: PRODUCT USED FOR UNKNOWN INDICATION
     Route: 058
  2. HYDROMORPHONE [Suspect]
     Indication: PRODUCT USED FOR UNKNOWN INDICATION
     Route: 058

REACTIONS (8)
  - Haemodynamic instability [None]
  - Medication error [None]
  - Depressed level of consciousness [None]
  - Blood pressure increased [None]
  - Blood glucose increased [None]
  - Grand mal convulsion [None]
  - Electrocardiogram QRS complex shortened [None]
  - Wrong drug administered [None]
